FAERS Safety Report 8576609-0 (Version None)
Quarter: 2012Q3

REPORT INFORMATION
  Report Type: 
  Country: None (occurrence: None)
  Receive Date: 20120807
  Receipt Date: 20120730
  Transmission Date: 20120928
  Serious: Yes (Other)
  Sender: FDA-Public Use
  Company Number: CA-ROCHE-1085771

PATIENT
  Sex: Male
  Weight: 80 kg

DRUGS (10)
  1. ACTEMRA [Suspect]
     Route: 042
     Dates: start: 20120612
  2. RANITIDINE [Concomitant]
  3. ASPIRIN [Concomitant]
  4. SULFATRIM [Concomitant]
  5. CELLCEPT [Concomitant]
  6. ACTONEL [Concomitant]
  7. ACTEMRA [Suspect]
     Indication: UNDIFFERENTIATED CONNECTIVE TISSUE DISEASE
     Route: 042
     Dates: start: 20120501
  8. PREDNISONE [Concomitant]
  9. CALCIUM D 500 [Concomitant]
  10. CODEINE SULFATE [Concomitant]

REACTIONS (2)
  - XANTHOGRANULOMA [None]
  - GRANULOMA [None]
